FAERS Safety Report 7629460-X (Version None)
Quarter: 2011Q3

REPORT INFORMATION
  Report Type: 
  Country: None (occurrence: None)
  Receive Date: 20110722
  Receipt Date: 20110719
  Transmission Date: 20111222
  Serious: Yes (Other)
  Sender: FDA-Public Use
  Company Number: JP-B.I. PHARMACEUTICALS,INC./RIDGEFIELD-2011-BP-16180NB

PATIENT
  Sex: Male
  Weight: 65.8 kg

DRUGS (3)
  1. UNKNOWN DRUG/CHOLESTEROL-LOWERING AGENT [Concomitant]
     Route: 048
  2. PRADAXA [Suspect]
     Dosage: 110 MG
     Route: 048
     Dates: start: 20110615, end: 20110615
  3. UNKNOWN DRUG/ARB [Concomitant]
     Route: 048

REACTIONS (1)
  - INTERNATIONAL NORMALISED RATIO INCREASED [None]
